FAERS Safety Report 22132351 (Version 1)
Quarter: 2023Q1

REPORT INFORMATION
  Report Type: Other
  Country: US (occurrence: US)
  Receive Date: 20230323
  Receipt Date: 20230323
  Transmission Date: 20230417
  Serious: Yes (Hospitalization)
  Sender: FDA-Public Use
  Company Number: US-TRAVERE-2022TVT00407

PATIENT
  Age: 3 Year
  Sex: Female

DRUGS (1)
  1. CHOLIC ACID [Suspect]
     Active Substance: CHOLIC ACID
     Indication: Inborn error in primary bile acid synthesis
     Dosage: 50MG 2 CAPSULES IN THE MORNING AND 1 CAPSULE IN THE EVENING
     Route: 048
     Dates: start: 20220226

REACTIONS (1)
  - Viral infection [Recovering/Resolving]
